FAERS Safety Report 5249251-7 (Version None)
Quarter: 2007Q1

REPORT INFORMATION
  Report Type: 
  Country: None (occurrence: None)
  Receive Date: 20070223
  Receipt Date: 20070209
  Transmission Date: 20070707
  Serious: Yes (Death, Hospitalization)
  Sender: FDA-Public Use
  Company Number: 2007RR-05792

PATIENT

DRUGS (4)
  1. PARACETAMOL (ACETAMINOPHEN/PARACETAMOL) UNKNOWN [Suspect]
  2. DIETHYLENE GLYCOL(DIETHYLENE GLYCOL) [Suspect]
  3. CHLORPHENIRAMINE MALEATE [Concomitant]
  4. DOMPERIDONE [Concomitant]

REACTIONS (4)
  - ENCEPHALOPATHY [None]
  - POISONING [None]
  - RENAL FAILURE [None]
  - THERAPEUTIC PRODUCT CONTAMINATION [None]
